FAERS Safety Report 7378345-5 (Version None)
Quarter: 2011Q1

REPORT INFORMATION
  Report Type: 
  Country: None (occurrence: None)
  Receive Date: 20110323
  Receipt Date: 20110323
  Transmission Date: 20110831
  Serious: No
  Sender: FDA-Public Use
  Company Number: None

PATIENT

DRUGS (4)
  1. RANITIDINE [Suspect]
  2. PANTOPRAZOLE [Suspect]
  3. OMEPRAZOLE [Suspect]
  4. PRILOSEC [Suspect]

REACTIONS (3)
  - DRUG INEFFECTIVE [None]
  - DYSPEPSIA [None]
  - CONDITION AGGRAVATED [None]
